FAERS Safety Report 10187422 (Version 1)
Quarter: 2014Q2

REPORT INFORMATION
  Report Type: Not Available
  Country: US (occurrence: US)
  Receive Date: 20140522
  Receipt Date: 20140522
  Transmission Date: 20141212
  Serious: No
  Sender: FDA-Public Use
  Company Number: US-LUPIN PHARMACEUTICALS INC.-E2B_00001999

PATIENT
  Age: 44 Year
  Sex: Female
  Weight: 74.91 kg

DRUGS (2)
  1. LISINOPRIL TABLETS USP 5MG [Suspect]
     Indication: HYPERTENSION
     Dates: start: 20140425, end: 20140429
  2. CALCITRIOL [Concomitant]
     Indication: PRODUCT USED FOR UNKNOWN INDICATION
     Route: 065

REACTIONS (5)
  - Palpitations [Recovered/Resolved]
  - Heart rate increased [Recovered/Resolved]
  - Anxiety [Recovered/Resolved]
  - Product substitution issue [Recovered/Resolved]
  - Panic attack [Recovered/Resolved]
